FAERS Safety Report 8069571-0 (Version None)
Quarter: 2012Q1

REPORT INFORMATION
  Report Type: 
  Country: None (occurrence: None)
  Receive Date: 20120119
  Receipt Date: 20120113
  Transmission Date: 20120608
  Serious: Yes (Death, Hospitalization)
  Sender: FDA-Public Use
  Company Number: NES-AE-12-001

PATIENT
  Age: 55 Year
  Sex: Male
  Weight: 70.3 kg

DRUGS (3)
  1. VALIUM [Concomitant]
  2. OXYCONTIN [Concomitant]
  3. MORPHINE [Suspect]
     Indication: BREAKTHROUGH PAIN
     Dosage: 15MG - QID PRN - ORAL
     Route: 048
     Dates: start: 20080101, end: 20081001

REACTIONS (15)
  - MENTAL STATUS CHANGES [None]
  - HEAD INJURY [None]
  - PNEUMONIA [None]
  - PLEURAL FIBROSIS [None]
  - FALL [None]
  - CONFUSIONAL STATE [None]
  - DYSPNOEA [None]
  - PRODUCTIVE COUGH [None]
  - ALTERED STATE OF CONSCIOUSNESS [None]
  - LUNG NEOPLASM [None]
  - COUGH [None]
  - OVERDOSE [None]
  - LETHARGY [None]
  - WHEEZING [None]
  - DIZZINESS [None]
